FAERS Safety Report 10442036 (Version 5)
Quarter: 2015Q2

REPORT INFORMATION
  Report Type: Report from Study
  Country: BR (occurrence: BR)
  Receive Date: 20140909
  Receipt Date: 20150409
  Transmission Date: 20150821
  Serious: Yes (Death, Hospitalization, Disabling, Other)
  Sender: FDA-Public Use
  Company Number: BR-BAYER-2014-130899

PATIENT
  Age: 82 Year
  Sex: Male
  Weight: 42 kg

DRUGS (6)
  1. NEXAVAR [Suspect]
     Active Substance: SORAFENIB
     Indication: HEPATOBILIARY CANCER
     Dosage: 800 MG (4 TABLETS) QD
     Route: 048
     Dates: start: 201407, end: 20140817
  2. ALDACTONE [Concomitant]
     Active Substance: SPIRONOLACTONE
     Indication: HEPATIC CIRRHOSIS
     Dosage: 1 DF, OM
     Route: 048
     Dates: start: 2001
  3. PROPANOLOL [Concomitant]
     Active Substance: PROPRANOLOL HYDROCHLORIDE
     Indication: PORTAL VEIN PRESSURE INCREASED
     Dosage: 1 DF, BID
     Route: 048
     Dates: start: 2001
  4. FUROSEMIDE [FUROSEMIDE] [Concomitant]
     Indication: ASCITES
     Dosage: 1 DF, QD
     Route: 048
     Dates: start: 2001
  5. NEXAVAR [Suspect]
     Active Substance: SORAFENIB
     Indication: HEPATOBILIARY CANCER
     Dosage: 400 MG (2 TABLETS), QD
     Route: 048
     Dates: start: 20140817
  6. OMEPRAZOLE. [Concomitant]
     Active Substance: OMEPRAZOLE
     Indication: GASTRIC DISORDER
     Dosage: 1 DF, OM
     Route: 048
     Dates: start: 2001

REACTIONS (13)
  - Walking disability [Not Recovered/Not Resolved]
  - Vomiting [Recovered/Resolved]
  - Weight decreased [Not Recovered/Not Resolved]
  - Spinal fracture [None]
  - Hepatic cirrhosis [Fatal]
  - Mobility decreased [Not Recovered/Not Resolved]
  - Hepatic cancer [None]
  - Back pain [Not Recovered/Not Resolved]
  - Malaise [Recovered/Resolved]
  - Hepatobiliary cancer [None]
  - Haemorrhage [Recovered/Resolved]
  - Osteoporosis [None]
  - Fall [None]

NARRATIVE: CASE EVENT DATE: 2014
